FAERS Safety Report 24343563 (Version 2)
Quarter: 2024Q3

REPORT INFORMATION
  Report Type: Spontaneous
  Country: FR (occurrence: FR)
  Receive Date: 20240920
  Receipt Date: 20240925
  Transmission Date: 20241016
  Serious: Yes (Hospitalization)
  Sender: PFIZER
  Company Number: None

PATIENT
  Age: 79 Year
  Sex: Male
  Weight: 110 kg

DRUGS (9)
  1. PANTOPRAZOLE [Suspect]
     Active Substance: PANTOPRAZOLE
     Indication: Pain
     Dosage: 20 MILLIGRAM, QD
     Route: 048
     Dates: start: 20240715, end: 20240730
  2. DICLOFENAC [Suspect]
     Active Substance: DICLOFENAC
     Indication: Pain
     Dosage: 100 MILLIGRAM, QD
     Route: 048
     Dates: start: 20240627, end: 20240730
  3. TRAMADOL HYDROCHLORIDE [Suspect]
     Active Substance: TRAMADOL HYDROCHLORIDE
     Indication: Pain
     Dosage: 100 MILLIGRAM, QD
     Route: 048
     Dates: start: 20240715, end: 20240730
  4. NAPROXEN [Suspect]
     Active Substance: NAPROXEN
     Indication: Pain
     Dosage: 1500 MILLIGRAM, QD
     Route: 048
     Dates: start: 20240715, end: 20240730
  5. SKENAN [Suspect]
     Active Substance: MORPHINE SULFATE
     Indication: Pain
     Dosage: 100 MILLIGRAM, QD
     Route: 048
     Dates: start: 20240627, end: 20240730
  6. CHOLECALCIFEROL [Concomitant]
     Active Substance: CHOLECALCIFEROL
     Dosage: UNK
  7. ALLOPURINOL [Concomitant]
     Active Substance: ALLOPURINOL
     Dosage: UNK
  8. MORPHINE SULFATE [Concomitant]
     Active Substance: MORPHINE SULFATE
     Dosage: UNK
  9. ALFUZOSIN HYDROCHLORIDE [Concomitant]
     Active Substance: ALFUZOSIN HYDROCHLORIDE
     Dosage: UNK

REACTIONS (1)
  - Hepatitis cholestatic [Recovering/Resolving]

NARRATIVE: CASE EVENT DATE: 20240730
